FAERS Safety Report 4864959-0 (Version None)
Quarter: 2005Q4

REPORT INFORMATION
  Report Type: 
  Country: None (occurrence: None)
  Receive Date: 20051214
  Receipt Date: 20051122
  Transmission Date: 20060501
  Serious: Yes (Hospitalization)
  Sender: FDA-Public Use
  Company Number: 200511853BBE

PATIENT
  Age: 9 Year
  Sex: Male
  Weight: 29.1 kg

DRUGS (3)
  1. GAMUNEX [Suspect]
     Indication: HYPOGAMMAGLOBULINAEMIA
     Dates: start: 20040329
  2. GAMUNEX [Suspect]
     Indication: HYPOGAMMAGLOBULINAEMIA
     Dates: start: 20040329
  3. GAMUNEX [Suspect]

REACTIONS (4)
  - CREPITATIONS [None]
  - HEADACHE [None]
  - LETHARGY [None]
  - NAUSEA [None]
